FAERS Safety Report 16437424 (Version 1)
Quarter: 2019Q2

REPORT INFORMATION
  Report Type: Spontaneous
  Country: IT (occurrence: IT)
  Receive Date: 20190615
  Receipt Date: 20190615
  Transmission Date: 20190711
  Serious: Yes (Other)
  Sender: FDA-Public Use
  Company Number: IT-SUN PHARMACEUTICAL INDUSTRIES LTD-2019RR-210657

PATIENT
  Age: 63 Year
  Sex: Female
  Weight: 64 kg

DRUGS (2)
  1. GEMCITABINE [Suspect]
     Active Substance: GEMCITABINE\GEMCITABINE HYDROCHLORIDE
     Indication: BREAST CANCER METASTATIC
     Dosage: 1252 MILLIGRAM, CYCLICAL
     Route: 042
     Dates: start: 20190509, end: 20190509
  2. CARBOPLATIN. [Suspect]
     Active Substance: CARBOPLATIN
     Indication: BREAST CANCER METASTATIC
     Dosage: 213 MILLIGRAM, CYCLICAL
     Route: 042
     Dates: start: 20190509

REACTIONS (3)
  - Transaminases increased [Unknown]
  - Chromaturia [Unknown]
  - Jaundice [Unknown]

NARRATIVE: CASE EVENT DATE: 20190521
